FAERS Safety Report 20167284 (Version 1)
Quarter: 2021Q4

REPORT INFORMATION
  Report Type: Spontaneous
  Country: US (occurrence: None)
  Receive Date: 20211208
  Receipt Date: 20211208
  Transmission Date: 20220303
  Serious: No
  Sender: FDA-Public Use
  Company Number: None

PATIENT
  Age: 33 Year
  Sex: Female
  Weight: 124.4 kg

DRUGS (7)
  1. KETOROLAC [Suspect]
     Active Substance: KETOROLAC TROMETHAMINE
     Indication: Pain
     Dosage: OTHER FREQUENCY : ONCE;?
     Route: 040
     Dates: start: 20211203, end: 20211203
  2. FUROSEMIDE [Concomitant]
     Active Substance: FUROSEMIDE
  3. ACETAMINOPHEN\OXYCODONE HYDROCHLORIDE [Concomitant]
     Active Substance: ACETAMINOPHEN\OXYCODONE HYDROCHLORIDE
  4. CEFAZOLIN [Concomitant]
     Active Substance: CEFAZOLIN
  5. CITRIC ACID, 1-STEARYL ESTER\SODIUM CITRATE [Concomitant]
     Active Substance: CITRIC ACID, 1-STEARYL ESTER\SODIUM CITRATE
  6. DOCUSATE [Concomitant]
     Active Substance: DOCUSATE
  7. NIFEDIPINE [Concomitant]
     Active Substance: NIFEDIPINE

REACTIONS (2)
  - Anaphylactic reaction [None]
  - Caesarean section [None]

NARRATIVE: CASE EVENT DATE: 20211203
